FAERS Safety Report 8914600 (Version 1)
Quarter: 2012Q4

REPORT INFORMATION
  Report Type: 
  Country: US (occurrence: US)
  Receive Date: 20121119
  Receipt Date: 20121119
  Transmission Date: 20130627
  Serious: No
  Sender: FDA-Public Use
  Company Number: US-B.I. PHARMACEUTICALS,INC./RIDGEFIELD-2012-BI-00514BP

PATIENT
  Age: 82 Year
  Sex: Male
  Weight: 84 kg

DRUGS (7)
  1. SPIRIVA [Suspect]
     Indication: CHRONIC OBSTRUCTIVE PULMONARY DISEASE
     Dosage: 18 mcg
     Route: 055
     Dates: start: 2009, end: 20121107
  2. SPIRIVA [Suspect]
     Dosage: 72 mcg
     Route: 055
     Dates: start: 20121108
  3. CLOPIDOGREL [Concomitant]
     Dosage: 75 mg
     Route: 048
     Dates: start: 2009
  4. KLOR-CON [Concomitant]
     Route: 048
     Dates: start: 2009
  5. OMEPRAZOLE [Concomitant]
     Dosage: 20 mg
     Route: 048
     Dates: start: 2009
  6. NEBULIZER [Concomitant]
     Indication: CHRONIC OBSTRUCTIVE PULMONARY DISEASE
     Route: 055
     Dates: start: 2009
  7. ADVAIR [Concomitant]
     Indication: CHRONIC OBSTRUCTIVE PULMONARY DISEASE
     Route: 055
     Dates: start: 2009

REACTIONS (1)
  - Drug prescribing error [Not Recovered/Not Resolved]
